FAERS Safety Report 20920665 (Version 1)
Quarter: 2022Q2

REPORT INFORMATION
  Report Type: Spontaneous
  Country: US (occurrence: None)
  Receive Date: 20220606
  Receipt Date: 20220606
  Transmission Date: 20220721
  Serious: No
  Sender: FDA-Public Use
  Company Number: None

PATIENT
  Age: 57 Year
  Sex: Female
  Weight: 55.3 kg

DRUGS (16)
  1. CAPECITABINE [Suspect]
     Active Substance: CAPECITABINE
     Indication: Anal cancer
     Dosage: FREQUENCY : TWICE A DAY;?
     Route: 048
  2. CETIRIINE [Concomitant]
  3. BREO ELLIPTA [Concomitant]
     Active Substance: FLUTICASONE FUROATE\VILANTEROL TRIFENATATE
  4. COMBIVENT RESPIMAT INHALATION AEROS [Concomitant]
  5. CRESTOR [Concomitant]
  6. DICLOFENAC [Concomitant]
  7. GABAPENTIN [Concomitant]
  8. OMEPRAZOL [Concomitant]
  9. DICLOFENAC [Concomitant]
  10. GABAPENTIN [Concomitant]
  11. COMBIVENT RESPIMAT INHALATION AEROS [Concomitant]
  12. MITOMYCIN INTRAVESICAL SOLUTION PRE [Concomitant]
  13. OXYCODONE [Concomitant]
  14. PREDNISONE [Concomitant]
     Active Substance: PREDNISONE
  15. ROPINRIOLE [Concomitant]
  16. TIZANIDINE [Concomitant]

REACTIONS (1)
  - Hospice care [None]

NARRATIVE: CASE EVENT DATE: 20220603
